FAERS Safety Report 8235858-1 (Version None)
Quarter: 2012Q1

REPORT INFORMATION
  Report Type: 
  Country: None (occurrence: None)
  Receive Date: 20120326
  Receipt Date: 20120320
  Transmission Date: 20120608
  Serious: No
  Sender: FDA-Public Use
  Company Number: US-PFIZER INC-2012072993

PATIENT
  Sex: Male
  Weight: 87.982 kg

DRUGS (9)
  1. VIVELLE-DOT [Concomitant]
     Dosage: 0.2 MG, ONCE IN EVERY 3 AND HALF DAYS
  2. LUPRON [Concomitant]
     Indication: PROSTATE CANCER
     Dosage: UNK
  3. ALLOPURINOL [Concomitant]
     Dosage: 200 MG, 1X/DAY
  4. ZYTIGA [Concomitant]
     Dosage: 1000 MG, 1X/DAY
  5. GABAPENTIN [Suspect]
     Indication: NEUROPATHY PERIPHERAL
     Dosage: 300 MG, 2X/DAY
     Route: 048
     Dates: start: 20120316
  6. GABAPENTIN [Suspect]
     Indication: PAIN IN EXTREMITY
  7. PREVACID [Concomitant]
     Dosage: 30 MG, 2X/DAY
  8. LOSARTAN [Concomitant]
     Dosage: 50 MG, 1X/DAY
  9. PREDNISONE [Concomitant]
     Dosage: 5 MG, 2X/DAY

REACTIONS (2)
  - DRUG INEFFECTIVE [None]
  - SOMNOLENCE [None]
